FAERS Safety Report 8369454-2 (Version None)
Quarter: 2012Q2

REPORT INFORMATION
  Report Type: 
  Country: None (occurrence: None)
  Receive Date: 20120517
  Receipt Date: 20120517
  Transmission Date: 20120825
  Serious: Yes (Death)
  Sender: FDA-Public Use
  Company Number: None

PATIENT
  Age: 75 Year
  Sex: Male
  Weight: 96.1626 kg

DRUGS (1)
  1. AMIODARONE HCL [Suspect]
     Indication: HEART RATE IRREGULAR
     Dosage: 200 MG ONCE DAILY ORALLY
     Route: 048
     Dates: start: 20111017, end: 20111107

REACTIONS (9)
  - SOMNOLENCE [None]
  - DEPRESSION [None]
  - CONSTIPATION [None]
  - COMPLETED SUICIDE [None]
  - NAUSEA [None]
  - VOMITING [None]
  - HALLUCINATION [None]
  - DECREASED APPETITE [None]
  - DIARRHOEA [None]
